FAERS Safety Report 8764463 (Version 2)
Quarter: 2012Q4

REPORT INFORMATION
  Report Type: 
  Country: US (occurrence: US)
  Receive Date: 20120831
  Receipt Date: 20121029
  Transmission Date: 20130627
  Serious: Yes (Other)
  Sender: FDA-Public Use
  Company Number: US-PERRIGO-12US007349

PATIENT
  Age: 57 Year
  Sex: Female
  Weight: 90.7 kg

DRUGS (3)
  1. IBUPROFEN 200MG 647 [Suspect]
     Indication: PAIN
     Dosage: 400 mg, single
     Route: 048
     Dates: start: 20120817, end: 20120817
  2. HYDROCHLOROTHIAZIDE [Concomitant]
     Indication: HYPERTENSION
     Dosage: UNK, UNK
     Route: 048
  3. SYNTHROID [Concomitant]
     Indication: HYPOTHYROIDISM
     Dosage: UNK, UNK
     Route: 048

REACTIONS (7)
  - Hypersensitivity [Recovered/Resolved]
  - Angioedema [Recovered/Resolved]
  - Dyspnoea [Recovered/Resolved]
  - Lip swelling [Recovered/Resolved]
  - Swelling face [Recovered/Resolved]
  - Skin discolouration [Recovered/Resolved]
  - Lip discolouration [Recovered/Resolved]
